FAERS Safety Report 5774324-X (Version None)
Quarter: 2008Q2

REPORT INFORMATION
  Report Type: 
  Country: None (occurrence: None)
  Receive Date: 20080616
  Receipt Date: 20080603
  Transmission Date: 20081010
  Serious: Yes (Other)
  Sender: FDA-Public Use
  Company Number: PHHY2008CA10100

PATIENT
  Age: 43 Year
  Sex: Female

DRUGS (4)
  1. NEORAL [Suspect]
     Indication: PYODERMA GANGRENOSUM
     Dosage: UNK
  2. PANTOPRAZOLE SODIUM [Concomitant]
  3. CLINDAMYCIN TOPICAL [Concomitant]
  4. DOCUSATE [Concomitant]

REACTIONS (3)
  - ARTHRALGIA [None]
  - BURNING SENSATION [None]
  - TEMPERATURE INTOLERANCE [None]
